FAERS Safety Report 10157186 (Version 1)
Quarter: 2014Q2

REPORT INFORMATION
  Report Type: Spontaneous
  Country: US (occurrence: US)
  Receive Date: 20140507
  Receipt Date: 20140507
  Transmission Date: 20141212
  Serious: No
  Sender: FDA-Public Use
  Company Number: US-PFIZER INC-2014122106

PATIENT
  Age: 69 Year
  Sex: Female
  Weight: 90.7 kg

DRUGS (6)
  1. LYRICA [Suspect]
     Indication: NEUROPATHY PERIPHERAL
     Dosage: UNK
     Route: 048
  2. LYRICA [Suspect]
     Dosage: 100 MG, 3X/DAY
     Route: 048
  3. LYRICA [Suspect]
     Dosage: 50 MG, UNK
     Route: 048
     Dates: start: 2014, end: 2014
  4. LYRICA [Suspect]
     Dosage: 100 MG, 3X/DAY
     Dates: start: 2014
  5. AMLODIPINE [Concomitant]
     Indication: VASOCONSTRICTION
     Dosage: 5 MG, 1X/DAY
     Route: 048
  6. PRISTIQ [Concomitant]
     Indication: DEPRESSION
     Dosage: 100 MG, 3X/DAY
     Route: 048

REACTIONS (1)
  - Peripheral swelling [Recovered/Resolved]
